FAERS Safety Report 16777896 (Version 2)
Quarter: 2019Q3

REPORT INFORMATION
  Report Type: Spontaneous
  Country: US (occurrence: US)
  Receive Date: 20190905
  Receipt Date: 20190917
  Transmission Date: 20191005
  Serious: Yes (Hospitalization)
  Sender: FDA-Public Use
  Company Number: US-TEVA-2019-US-1102389

PATIENT
  Sex: Male

DRUGS (6)
  1. CLONAZEPAM. [Suspect]
     Active Substance: CLONAZEPAM
     Indication: FOCAL DYSCOGNITIVE SEIZURES
     Route: 065
  2. CLONIDINE. [Concomitant]
     Active Substance: CLONIDINE
     Route: 065
  3. DEPAKOTE [Suspect]
     Active Substance: DIVALPROEX SODIUM
     Indication: FOCAL DYSCOGNITIVE SEIZURES
     Route: 065
  4. ZOLOFT [Suspect]
     Active Substance: SERTRALINE HYDROCHLORIDE
     Indication: FOCAL DYSCOGNITIVE SEIZURES
     Route: 065
  5. FEXOFENADINE [Concomitant]
     Active Substance: FEXOFENADINE HYDROCHLORIDE
     Route: 065
  6. LEVOCARNITINE. [Concomitant]
     Active Substance: LEVOCARNITINE
     Route: 065

REACTIONS (8)
  - Behaviour disorder [Unknown]
  - Inappropriate antidiuretic hormone secretion [Unknown]
  - Somnolence [Unknown]
  - Hyponatraemia [Recovered/Resolved]
  - Osteopenia [Recovered/Resolved]
  - Pathological fracture [Recovered/Resolved]
  - Fall [Unknown]
  - Lethargy [Unknown]
